FAERS Safety Report 7946461-2 (Version None)
Quarter: 2011Q4

REPORT INFORMATION
  Report Type: 
  Country: None (occurrence: None)
  Receive Date: 20111129
  Receipt Date: 20111122
  Transmission Date: 20120403
  Serious: Yes (Other)
  Sender: FDA-Public Use
  Company Number: MA-ABBOTT-11P-110-0876609-00

PATIENT
  Age: 27 Year
  Sex: Female

DRUGS (1)
  1. PROGESTERONE [Suspect]
     Indication: ANTEPARTUM HAEMORRHAGE

REACTIONS (1)
  - BENIGN INTRACRANIAL HYPERTENSION [None]
